FAERS Safety Report 4917518-5 (Version None)
Quarter: 2006Q1

REPORT INFORMATION
  Report Type: 
  Country: None (occurrence: None)
  Receive Date: 20060221
  Receipt Date: 20050816
  Transmission Date: 20060701
  Serious: Yes (Hospitalization, Disabling)
  Sender: FDA-Public Use
  Company Number: US-MERCK-0508USA02891

PATIENT
  Age: 41 Year
  Sex: Female
  Weight: 91 kg

DRUGS (12)
  1. VIOXX [Suspect]
     Indication: ARTHRALGIA
     Route: 048
     Dates: start: 20000801, end: 20020201
  2. VIOXX [Suspect]
     Route: 048
     Dates: start: 20030501, end: 20040101
  3. VIOXX [Suspect]
     Route: 048
     Dates: start: 20000801, end: 20020201
  4. VIOXX [Suspect]
     Route: 048
     Dates: start: 20030501, end: 20040101
  5. VIOXX [Suspect]
     Indication: PLANTAR FASCIITIS
     Route: 048
     Dates: start: 20000801, end: 20020201
  6. VIOXX [Suspect]
     Route: 048
     Dates: start: 20030501, end: 20040101
  7. VIOXX [Suspect]
     Route: 048
     Dates: start: 20000801, end: 20020201
  8. VIOXX [Suspect]
     Route: 048
     Dates: start: 20030501, end: 20040101
  9. TYLENOL [Concomitant]
     Indication: ARTHRALGIA
     Route: 065
  10. TYLENOL [Concomitant]
     Indication: PLANTAR FASCIITIS
     Route: 065
  11. DARVOCET-N 50 [Concomitant]
     Route: 065
  12. HYDROCODONE HYDROCHLORIDE [Concomitant]
     Route: 065

REACTIONS (11)
  - CEREBRAL ISCHAEMIA [None]
  - CHEST PAIN [None]
  - DEPRESSION [None]
  - EXOSTOSIS [None]
  - HYPERTENSIVE ENCEPHALOPATHY [None]
  - ISCHAEMIC STROKE [None]
  - MIGRAINE [None]
  - MOOD SWINGS [None]
  - RENAL DISORDER [None]
  - THROMBOSIS [None]
  - VOMITING [None]
